FAERS Safety Report 5054283-8 (Version None)
Quarter: 2006Q3

REPORT INFORMATION
  Report Type: 
  Country: None (occurrence: None)
  Receive Date: 20060718
  Receipt Date: 20060119
  Transmission Date: 20061208
  Serious: Yes (Congenital Anomaly)
  Sender: FDA-Public Use
  Company Number: FR-BRISTOL-MYERS SQUIBB COMPANY-13255310

PATIENT
  Sex: Female
  Weight: 3 kg

DRUGS (1)
  1. ABILIFY [Suspect]
     Route: 064
     Dates: end: 20060101

REACTIONS (2)
  - HYPOTONIA [None]
  - PREGNANCY [None]
